FAERS Safety Report 4310714-X (Version None)
Quarter: 2004Q1

REPORT INFORMATION
  Report Type: 
  Country: None (occurrence: None)
  Receive Date: 20040302
  Receipt Date: 20040225
  Transmission Date: 20041129
  Serious: Yes (Hospitalization)
  Sender: FDA-Public Use
  Company Number: 200310377BYL

PATIENT
  Age: 79 Year
  Sex: Male
  Weight: 55 kg

DRUGS (8)
  1. ASPIRIN [Suspect]
     Indication: ATRIAL FIBRILLATION
     Dosage: 100 MG, QD, ORAL
     Route: 048
     Dates: start: 20030301, end: 20030924
  2. AMLODIPINE BESYLATE [Suspect]
     Indication: HYPERTENSION
     Dosage: 2.5 MG, QD, ORAL
     Route: 048
     Dates: start: 19950201, end: 20030924
  3. PLETAL [Suspect]
     Indication: ATHEROSCLEROSIS OBLITERANS
     Dosage: 50 MG, QD, ORAL
     Route: 048
     Dates: start: 19950201, end: 20030923
  4. ALLOPURINOL [Suspect]
     Indication: HYPERURICAEMIA
     Dosage: 50 MG, BID, ORAL
     Route: 048
     Dates: start: 19950201, end: 20030924
  5. NITRODERM [Concomitant]
  6. LASIX [Concomitant]
  7. HALFDIGOXIN [Concomitant]
  8. PENFILL N [Concomitant]

REACTIONS (3)
  - ABDOMINAL PAIN UPPER [None]
  - JAUNDICE CHOLESTATIC [None]
  - LIVER DISORDER [None]
